FAERS Safety Report 8352758-7 (Version None)
Quarter: 2012Q2

REPORT INFORMATION
  Report Type: 
  Country: None (occurrence: None)
  Receive Date: 20120511
  Receipt Date: 20120430
  Transmission Date: 20120825
  Serious: Yes (Other)
  Sender: FDA-Public Use
  Company Number: US-SANOFI-AVENTIS-2012SA030644

PATIENT
  Age: 73 Year
  Sex: Female

DRUGS (3)
  1. ALLEGRA [Suspect]
     Route: 048
     Dates: start: 20120429
  2. ALLEGRA [Suspect]
     Dates: end: 20120101
  3. ATIVAN [Suspect]
     Dates: start: 20120429

REACTIONS (4)
  - HERPES ZOSTER [None]
  - SLEEP DISORDER [None]
  - ANGIOPATHY [None]
  - SINUSITIS [None]
